FAERS Safety Report 16337476 (Version 1)
Quarter: 2019Q2

REPORT INFORMATION
  Report Type: Spontaneous
  Country: US (occurrence: US)
  Receive Date: 20190520
  Receipt Date: 20190520
  Transmission Date: 20190711
  Serious: No
  Sender: FDA-Public Use
  Company Number: None

PATIENT
  Age: 35 Year
  Sex: Male
  Weight: 83.25 kg

DRUGS (4)
  1. VITAMIN D3 [Concomitant]
     Active Substance: CHOLECALCIFEROL
  2. SERTRALINE HYDROCHLORIDE TABLETS USP [Suspect]
     Active Substance: SERTRALINE HYDROCHLORIDE
     Indication: PREMATURE EJACULATION
     Dosage: ?          QUANTITY:2 TABLET(S);?
     Route: 048
  3. DEXTROAMPHETAMINE ER 45 MG [Concomitant]
  4. XYREM 4.5 GMS [Concomitant]

REACTIONS (5)
  - Irritability [None]
  - Hyperacusis [None]
  - Withdrawal syndrome [None]
  - Suspected product quality issue [None]
  - Eye movement disorder [None]

NARRATIVE: CASE EVENT DATE: 20190501
